FAERS Safety Report 5062694-X (Version None)
Quarter: 2006Q3

REPORT INFORMATION
  Report Type: 
  Country: None (occurrence: None)
  Receive Date: 20060703
  Receipt Date: 20051031
  Transmission Date: 20061208
  Serious: No
  Sender: FDA-Public Use
  Company Number: 2005S1010739

PATIENT
  Age: 37 Year
  Sex: Male
  Weight: 99.7913 kg

DRUGS (6)
  1. CLOZAPINE [Suspect]
     Indication: SCHIZOAFFECTIVE DISORDER
     Dosage: 500 MG; HS; PO
     Route: 048
     Dates: start: 20041129, end: 20051020
  2. RISPERIDONE [Concomitant]
  3. CITALOPRAM [Concomitant]
  4. MODAFINIL [Concomitant]
  5. PRAVASTATIN SODIUM [Concomitant]
  6. VALPROATE SODIUM [Concomitant]

REACTIONS (1)
  - GRANULOCYTOPENIA [None]
